FAERS Safety Report 6866111-6 (Version None)
Quarter: 2010Q2

REPORT INFORMATION
  Report Type: 
  Country: None (occurrence: None)
  Receive Date: 20100601
  Receipt Date: 20090109
  Transmission Date: 20101027
  Serious: No
  Sender: FDA-Public Use
  Company Number: 2009-01020

PATIENT
  Age: 49 Year
  Sex: Female
  Weight: 56.6996 kg

DRUGS (4)
  1. ZICAM ALLERGY RELIEF NASAL GEL [Suspect]
     Dosage: BID/3 MONTHS
     Dates: start: 20080101, end: 20090106
  2. IBUPROFEN TABLETS [Concomitant]
  3. NEILMED'S NASAL RINSE [Concomitant]
  4. SUDAFED 12 HOUR [Concomitant]

REACTIONS (3)
  - AGEUSIA [None]
  - ANOSMIA [None]
  - PAIN [None]
